FAERS Safety Report 8593405-9 (Version None)
Quarter: 2012Q3

REPORT INFORMATION
  Report Type: 
  Country: None (occurrence: None)
  Receive Date: 20120814
  Receipt Date: 20120807
  Transmission Date: 20120928
  Serious: Yes (Hospitalization, Other)
  Sender: FDA-Public Use
  Company Number: PHEH2012US015252

PATIENT
  Sex: Female

DRUGS (23)
  1. VITAMIN D [Concomitant]
     Dosage: 2 DF, QD
     Route: 048
  2. FERROUS SULFATE TAB [Concomitant]
     Dosage: 1 DF, QD
     Route: 048
  3. GLUCOPHAGE [Concomitant]
     Dosage: 1 DF, QD
     Route: 048
  4. PROTONIX [Concomitant]
     Dosage: 1 DF, QD
     Route: 048
  5. EXCEDRIN (MIGRAINE) [Concomitant]
  6. VITAMIN D [Concomitant]
     Dosage: 2 DF, QD
  7. ASPIRIN [Concomitant]
     Dosage: 1 DF, QD
     Route: 048
  8. POTASSIUM CHLORIDE [Concomitant]
     Dosage: 1 DF, QD
     Route: 048
  9. TRILIPIX [Concomitant]
     Dosage: 1 DF, QD
     Route: 048
  10. PROPYLENE GLYCOL [Concomitant]
     Dosage: 1-2 DROPS BY BOTH EYES 3 TIMES DAILY
     Route: 047
  11. GILENYA [Suspect]
     Indication: MULTIPLE SCLEROSIS
     Dosage: 0.5 MG, QD
     Route: 048
     Dates: start: 20110201, end: 20120802
  12. CALTRATE 600 + VITAMIN D [Concomitant]
     Route: 048
  13. COREG [Concomitant]
     Dosage: 1 DF, BID
     Route: 048
  14. CYMBALTA [Concomitant]
     Dosage: 1 DF, BID
     Route: 048
  15. NIASPAN [Concomitant]
     Dosage: 1 DF, QD
     Route: 048
  16. PLAVIX [Concomitant]
     Dosage: 1 DF, QD
     Route: 048
  17. SYNTHROID [Concomitant]
     Dosage: 1 DF, QD
     Route: 048
  18. COZAAR [Concomitant]
     Dosage: 1 DF, QD
     Route: 048
  19. NASONEX [Concomitant]
     Dosage: 1 SPARY BY EACH NOSTRIL ROUTE DAILY
     Route: 045
  20. ASCORBIC ACID [Concomitant]
     Dosage: 500 MG, QD
     Route: 048
  21. LASIX [Concomitant]
     Dosage: 1 DF, QD
     Route: 048
  22. ATENOLOL [Concomitant]
     Dosage: 50 MG, QD
  23. PEPCID [Concomitant]
     Dosage: 20 MG, BID

REACTIONS (29)
  - MYOCARDIAL INFARCTION [None]
  - DYSPNOEA [None]
  - ASTHENIA [None]
  - PLEURAL EFFUSION [None]
  - VENTRICULAR HYPOKINESIA [None]
  - ELECTROCARDIOGRAM QT PROLONGED [None]
  - ELECTROCARDIOGRAM ST SEGMENT ELEVATION [None]
  - TRICUSPID VALVE INCOMPETENCE [None]
  - ELECTROCARDIOGRAM QRS COMPLEX ABNORMAL [None]
  - PULMONARY CONGESTION [None]
  - AORTIC VALVE INCOMPETENCE [None]
  - ELECTROCARDIOGRAM ST SEGMENT DEPRESSION [None]
  - CARDIAC ANEURYSM [None]
  - CORONARY ARTERY OCCLUSION [None]
  - DIASTOLIC DYSFUNCTION [None]
  - EJECTION FRACTION DECREASED [None]
  - RENAL FAILURE ACUTE [None]
  - BLOOD CREATININE INCREASED [None]
  - ANGINA PECTORIS [None]
  - BLOOD PRESSURE INCREASED [None]
  - CHEST DISCOMFORT [None]
  - HYPERHIDROSIS [None]
  - CARDIAC FAILURE CONGESTIVE [None]
  - ORTHOPNOEA [None]
  - PULMONARY OEDEMA [None]
  - CORONARY ARTERY STENOSIS [None]
  - VENTRICULAR EXTRASYSTOLES [None]
  - LEFT ATRIAL DILATATION [None]
  - HAEMOGLOBIN DECREASED [None]
